FAERS Safety Report 13333851 (Version 1)
Quarter: 2017Q1

REPORT INFORMATION
  Report Type: Spontaneous
  Country: GB (occurrence: GB)
  Receive Date: 20170314
  Receipt Date: 20170314
  Transmission Date: 20170428
  Serious: Yes (Death, Other)
  Sender: FDA-Public Use
  Company Number: GB-BAYER-2017-047511

PATIENT
  Age: 68 Year
  Sex: Male

DRUGS (5)
  1. ACETYLSALICYLIC ACID({=100 MG) [Suspect]
     Active Substance: ASPIRIN
     Dosage: UNK
  2. PRASUGREL [Interacting]
     Active Substance: PRASUGREL
  3. WARFARIN [Interacting]
     Active Substance: WARFARIN
  4. HEPARIN [Concomitant]
     Active Substance: HEPARIN SODIUM
     Indication: THROMBOSIS IN DEVICE
     Dosage: UNK
     Route: 042
     Dates: start: 201308
  5. HEPARIN [Concomitant]
     Active Substance: HEPARIN SODIUM
     Indication: THROMBOSIS IN DEVICE
     Dosage: UNK
     Route: 042
     Dates: start: 2014

REACTIONS (7)
  - Haematuria [None]
  - Gastrointestinal haemorrhage [Fatal]
  - Epistaxis [None]
  - Drug administration error [Fatal]
  - Labelled drug-drug interaction medication error [Fatal]
  - Haematemesis [Not Recovered/Not Resolved]
  - Haemorrhagic anaemia [None]
